FAERS Safety Report 20121052 (Version 2)
Quarter: 2022Q2

REPORT INFORMATION
  Report Type: Spontaneous
  Country: FR (occurrence: None)
  Receive Date: 20211127
  Receipt Date: 20220407
  Transmission Date: 20220721
  Serious: Yes (Congenital Anomaly)
  Sender: FDA-Public Use
  Company Number: FR-ROCHE-2961134

PATIENT
  Age: 0 Year
  Sex: Male
  Weight: 4.12 kg

DRUGS (7)
  1. PEGASYS [Suspect]
     Active Substance: PEGINTERFERON ALFA-2A
     Indication: Product used for unknown indication
     Dosage: APR 2017, END DATE: JUN 2018?DEC 2018, 135 MCG EVERY 15 DAYS AND THEN WEEKLY STARTING IN NOVEMBER 20
     Route: 064
     Dates: start: 20201209, end: 20210904
  2. ASPIRIN DL-LYSINE [Concomitant]
     Active Substance: ASPIRIN DL-LYSINE
     Indication: Essential thrombocythaemia
     Route: 064
     Dates: start: 202012, end: 20210904
  3. HYDREA [Concomitant]
     Active Substance: HYDROXYUREA
     Dates: start: 2009, end: 2010
  4. HYDREA [Concomitant]
     Active Substance: HYDROXYUREA
     Dates: start: 2016, end: 2017
  5. ANAGRELIDE HYDROCHLORIDE [Concomitant]
     Active Substance: ANAGRELIDE HYDROCHLORIDE
     Dates: start: 201806, end: 201812
  6. FUROSEMIDE [Concomitant]
     Active Substance: FUROSEMIDE
  7. ASPIRIN [Concomitant]
     Active Substance: ASPIRIN

REACTIONS (2)
  - Transposition of the great vessels [Recovered/Resolved with Sequelae]
  - Foetal exposure during pregnancy [Unknown]

NARRATIVE: CASE EVENT DATE: 20210904
